FAERS Safety Report 11700200 (Version 1)
Quarter: 2015Q4

REPORT INFORMATION
  Report Type: Spontaneous
  Country: CR (occurrence: CR)
  Receive Date: 20151105
  Receipt Date: 20151105
  Transmission Date: 20160304
  Serious: Yes (Death)
  Sender: FDA-Public Use
  Company Number: CR-APOTEX-2015AP014202

PATIENT
  Age: 61 Year
  Sex: Female

DRUGS (1)
  1. PAXIL CR [Suspect]
     Active Substance: PAROXETINE HYDROCHLORIDE
     Indication: PANIC DISORDER
     Dosage: 25 MG, QD
     Route: 048

REACTIONS (1)
  - Death [Fatal]
